FAERS Safety Report 23595558 (Version 1)
Quarter: 2024Q1

REPORT INFORMATION
  Report Type: Spontaneous
  Country: SG (occurrence: SG)
  Receive Date: 20240305
  Receipt Date: 20240305
  Transmission Date: 20240409
  Serious: Yes (Other)
  Sender: FDA-Public Use
  Company Number: SG-ROCHE-3467606

PATIENT
  Age: 79 Year
  Sex: Female
  Weight: 66 kg

DRUGS (6)
  1. CAPECITABINE [Suspect]
     Active Substance: CAPECITABINE
     Indication: Product used for unknown indication
     Dosage: STRENGTH: 500MG; 2 TABLETS, TWICE A DAY, 2 WEEKS ON, 2 WEEKS OFF?DAILY DOSE: 4 DOSAGE FORM
     Route: 048
  2. PHESGO [Suspect]
     Active Substance: HYALURONIDASE-ZZXF\PERTUZUMAB\TRASTUZUMAB
     Indication: Product used for unknown indication
  3. PHESGO [Suspect]
     Active Substance: HYALURONIDASE-ZZXF\PERTUZUMAB\TRASTUZUMAB
     Indication: Product used for unknown indication
  4. LOVASTATIN [Concomitant]
     Active Substance: LOVASTATIN
     Dosage: 1 TABLET, EVERY DINNER?DAILY DOSE: 1 DOSAGE FORM
  5. ATENOLOL [Concomitant]
     Active Substance: ATENOLOL
     Dosage: 1 TABLET, EVERY MORNING?DAILY DOSE: 1 DOSAGE FORM
  6. Zynor [Concomitant]

REACTIONS (3)
  - Breast haemorrhage [Not Recovered/Not Resolved]
  - Dry mouth [Unknown]
  - Onychalgia [Unknown]

NARRATIVE: CASE EVENT DATE: 20230801
